FAERS Safety Report 7058179-1 (Version None)
Quarter: 2010Q4

REPORT INFORMATION
  Report Type: 
  Country: None (occurrence: None)
  Receive Date: 20101022
  Receipt Date: 20101012
  Transmission Date: 20110411
  Serious: Yes (Disabling)
  Sender: FDA-Public Use
  Company Number: CH-PFIZER INC-2010129245

PATIENT
  Sex: Female
  Weight: 70 kg

DRUGS (7)
  1. FARMORUBICIN [Suspect]
     Indication: BREAST CANCER
     Route: 041
  2. ZOMETA [Suspect]
     Indication: BREAST CANCER
     Dosage: 0.4 MG, MONTHLY
     Route: 041
     Dates: start: 20071201
  3. TAXOL [Suspect]
     Indication: BREAST CANCER
     Route: 041
  4. ENDOXAN [Suspect]
     Indication: BREAST CANCER
     Route: 041
  5. TAMOXIFEN CITRATE [Concomitant]
     Indication: BREAST CANCER
     Route: 048
  6. FEMARA [Concomitant]
     Indication: BREAST CANCER
     Route: 048
  7. FASLODEX [Concomitant]
     Indication: BREAST CANCER
     Route: 030

REACTIONS (1)
  - OSTEONECROSIS [None]
